FAERS Safety Report 13964253 (Version 1)
Quarter: 2017Q3

REPORT INFORMATION
  Report Type: Spontaneous
  Country: US (occurrence: US)
  Receive Date: 20170913
  Receipt Date: 20170913
  Transmission Date: 20171128
  Serious: Yes (Hospitalization)
  Sender: FDA-Public Use
  Company Number: US-JNJFOC-20170909952

PATIENT
  Sex: Male

DRUGS (1)
  1. ZYTIGA [Suspect]
     Active Substance: ABIRATERONE ACETATE
     Indication: PROSTATE CANCER
     Route: 048
     Dates: end: 20170909

REACTIONS (5)
  - Pyrexia [Unknown]
  - Pain [Unknown]
  - Swelling [Recovered/Resolved]
  - Erythema [Unknown]
  - Inflammation [Unknown]

NARRATIVE: CASE EVENT DATE: 20170902
